FAERS Safety Report 8299398-6 (Version None)
Quarter: 2012Q2

REPORT INFORMATION
  Report Type: 
  Country: None (occurrence: None)
  Receive Date: 20120419
  Receipt Date: 20120412
  Transmission Date: 20120825
  Serious: Yes (Death, Hospitalization, Other)
  Sender: FDA-Public Use
  Company Number: DE-JNJFOC-20100901797

PATIENT
  Age: 60 Year
  Sex: Male

DRUGS (5)
  1. METHOTREXATE SODIUM [Concomitant]
     Route: 048
     Dates: start: 20030301
  2. MARCUMAR [Concomitant]
     Indication: VENOUS THROMBOSIS
  3. REMICADE [Suspect]
     Indication: RHEUMATOID ARTHRITIS
     Route: 042
     Dates: end: 20090201
  4. MABTHERA [Concomitant]
     Dates: start: 20090414, end: 20090429
  5. REMICADE [Suspect]
     Route: 042
     Dates: start: 20060501

REACTIONS (1)
  - GLIOBLASTOMA MULTIFORME [None]
